FAERS Safety Report 4638242-2 (Version None)
Quarter: 2005Q2

REPORT INFORMATION
  Report Type: 
  Country: None (occurrence: None)
  Receive Date: 20050415
  Receipt Date: 20050324
  Transmission Date: 20051028
  Serious: Yes (Other)
  Sender: FDA-Public Use
  Company Number: USA050394017

PATIENT
  Sex: Female

DRUGS (5)
  1. CYMBALTA [Suspect]
     Indication: DEPRESSION
     Dosage: 30 MG/2 DAY
     Dates: start: 20041001
  2. ACIPHEX [Concomitant]
  3. CONTRACEPTION PILL (ORAL CONTRACEPTIVE NOS) [Concomitant]
  4. HYDROCODONE BITARTRATE [Concomitant]
  5. ANTIBIOTIC [Concomitant]

REACTIONS (9)
  - BURNS SECOND DEGREE [None]
  - DIFFICULTY IN WALKING [None]
  - HYPERSENSITIVITY [None]
  - INSOMNIA [None]
  - OEDEMA PERIPHERAL [None]
  - SOMNOLENCE [None]
  - SUNBURN [None]
  - SWELLING FACE [None]
  - VISUAL DISTURBANCE [None]
